FAERS Safety Report 5191845-1 (Version None)
Quarter: 2006Q4

REPORT INFORMATION
  Report Type: 
  Country: None (occurrence: None)
  Receive Date: 20061227
  Receipt Date: 20061214
  Transmission Date: 20070319
  Serious: Yes (Other)
  Sender: FDA-Public Use
  Company Number: US-JNJFOC-20061204866

PATIENT
  Sex: Female
  Weight: 56.7 kg

DRUGS (2)
  1. ULTRAM SR [Suspect]
     Indication: ARTHRITIS
     Route: 048
  2. ULTRAM [Suspect]
     Indication: ARTHRITIS
     Route: 048

REACTIONS (2)
  - DRUG WITHDRAWAL SYNDROME [None]
  - GASTRIC DISORDER [None]
